FAERS Safety Report 7971313-1 (Version None)
Quarter: 2011Q4

REPORT INFORMATION
  Report Type: 
  Country: None (occurrence: None)
  Receive Date: 20111212
  Receipt Date: 20111208
  Transmission Date: 20120403
  Serious: Yes (Life-Threatening, Disabling, Other)
  Sender: FDA-Public Use
  Company Number: PHHY2010TW82204

PATIENT
  Sex: Female

DRUGS (1)
  1. ZOLEDRONOC ACID [Suspect]
     Indication: LOWER LIMB FRACTURE
     Dosage: 5 MG, UNK
     Route: 042
     Dates: start: 20100914

REACTIONS (38)
  - BLOOD ALKALINE PHOSPHATASE DECREASED [None]
  - PIGMENTATION DISORDER [None]
  - PHARYNGITIS [None]
  - PRODUCTIVE COUGH [None]
  - GENERAL PHYSICAL HEALTH DETERIORATION [None]
  - ERYTHEMA [None]
  - NASOPHARYNGITIS [None]
  - BONE PAIN [None]
  - OSTEOARTHRITIS [None]
  - NAIL DISORDER [None]
  - ATROPHY [None]
  - BODY HEIGHT DECREASED [None]
  - BONE DISORDER [None]
  - DYSPNOEA [None]
  - URTICARIA [None]
  - RASH [None]
  - FEELING ABNORMAL [None]
  - BONE DENSITY DECREASED [None]
  - COLLAGEN DISORDER [None]
  - DISCOMFORT [None]
  - PAIN IN EXTREMITY [None]
  - MUSCULOSKELETAL STIFFNESS [None]
  - SOMNOLENCE [None]
  - ARTHRALGIA [None]
  - INSOMNIA [None]
  - PAIN [None]
  - MYALGIA [None]
  - OROPHARYNGEAL PAIN [None]
  - NAIL DISCOLOURATION [None]
  - ASTHENIA [None]
  - MENSTRUAL DISORDER [None]
  - NECROSIS [None]
  - WHITE BLOOD CELL COUNT DECREASED [None]
  - DERMATITIS ALLERGIC [None]
  - SKIN DISORDER [None]
  - RHINITIS [None]
  - RED BLOOD CELL COUNT DECREASED [None]
  - FATIGUE [None]
